FAERS Safety Report 8248247-0 (Version None)
Quarter: 2012Q1

REPORT INFORMATION
  Report Type: 
  Country: None (occurrence: None)
  Receive Date: 20120330
  Receipt Date: 20120323
  Transmission Date: 20120608
  Serious: Yes (Other)
  Sender: FDA-Public Use
  Company Number: US-US-EMD SERONO, INC.-7121477

PATIENT
  Sex: Female

DRUGS (1)
  1. REBIF [Suspect]
     Indication: MULTIPLE SCLEROSIS
     Route: 058
     Dates: start: 20100811

REACTIONS (4)
  - URINARY TRACT INFECTION [None]
  - OVARIAN CYST [None]
  - VISUAL IMPAIRMENT [None]
  - VISION BLURRED [None]
